FAERS Safety Report 4838677-9 (Version None)
Quarter: 2005Q4

REPORT INFORMATION
  Report Type: 
  Country: None (occurrence: None)
  Receive Date: 20051129
  Receipt Date: 20050823
  Transmission Date: 20060501
  Serious: No
  Sender: FDA-Public Use
  Company Number: US-GLAXOSMITHKLINE-A0571411A

PATIENT
  Age: 56 Year
  Sex: Female

DRUGS (2)
  1. COMMIT [Suspect]
     Dates: start: 20050715
  2. NICORETTE [Suspect]

REACTIONS (4)
  - DRUG INEFFECTIVE [None]
  - HICCUPS [None]
  - NICOTINE DEPENDENCE [None]
  - THROAT TIGHTNESS [None]
